FAERS Safety Report 17724524 (Version 3)
Quarter: 2020Q2

REPORT INFORMATION
  Report Type: Spontaneous
  Country: IT (occurrence: IT)
  Receive Date: 20200429
  Receipt Date: 20200603
  Transmission Date: 20200714
  Serious: Yes (Other)
  Sender: FDA-Public Use
  Company Number: NVSC2020IT113577

PATIENT
  Age: 26 Year
  Sex: Male

DRUGS (4)
  1. CARIPRAZINE [Concomitant]
     Active Substance: CARIPRAZINE
     Indication: PRODUCT USED FOR UNKNOWN INDICATION
     Dosage: UNK
     Route: 065
  2. LURASIDONE [Interacting]
     Active Substance: LURASIDONE
     Indication: PRODUCT USED FOR UNKNOWN INDICATION
     Dosage: 120 MG, QD
     Route: 048
  3. CARBAMAZEPINE. [Suspect]
     Active Substance: CARBAMAZEPINE
     Indication: PRODUCT USED FOR UNKNOWN INDICATION
     Dosage: 800 MG, QD
     Route: 065
  4. LURASIDONE [Interacting]
     Active Substance: LURASIDONE
     Dosage: 800 MG, QD
     Route: 048

REACTIONS (4)
  - Drug interaction [Unknown]
  - Central nervous system lesion [Recovered/Resolved]
  - Aggression [Unknown]
  - Reversible splenial lesion syndrome [Recovered/Resolved]
